FAERS Safety Report 12421318 (Version 2)
Quarter: 2016Q2

REPORT INFORMATION
  Report Type: Report from Study
  Country: CO (occurrence: CO)
  Receive Date: 20160531
  Receipt Date: 20160531
  Transmission Date: 20160815
  Serious: Yes (Hospitalization)
  Sender: FDA-Public Use
  Company Number: CO-JNJFOC-20160524267

PATIENT
  Age: 32 Year
  Sex: Male
  Weight: 74 kg

DRUGS (1)
  1. RISPERDAL CONSTA [Suspect]
     Active Substance: RISPERIDONE
     Indication: SCHIZOPHRENIA
     Route: 030
     Dates: start: 20110518

REACTIONS (4)
  - Suicide attempt [Recovered/Resolved]
  - Disorientation [Recovered/Resolved]
  - Condition aggravated [Unknown]
  - Persecutory delusion [Recovered/Resolved]

NARRATIVE: CASE EVENT DATE: 2016
